FAERS Safety Report 8139826-X (Version None)
Quarter: 2012Q1

REPORT INFORMATION
  Report Type: 
  Country: None (occurrence: None)
  Receive Date: 20120215
  Receipt Date: 20120206
  Transmission Date: 20120608
  Serious: Yes (Other)
  Sender: FDA-Public Use
  Company Number: CA-ASTRAZENECA-2012SE01477

PATIENT
  Age: 55 Year
  Sex: Male

DRUGS (4)
  1. NEXIUM [Concomitant]
     Indication: GASTROOESOPHAGEAL REFLUX DISEASE
     Route: 048
  2. FLUTICASONE FUROATE [Concomitant]
     Indication: NASAL SEPTUM DEVIATION
  3. SYMBICORT [Suspect]
     Dosage: 200/6 MCG, 2 PUFFS AS REQUIRED
     Route: 055
  4. SYMBICORT [Suspect]
     Indication: ASTHMA
     Dosage: 200/6 MCG, 2 PUFFS BID
     Route: 055
     Dates: start: 20070901

REACTIONS (4)
  - PULMONARY CONGESTION [None]
  - DYSPNOEA [None]
  - ASTHMA [None]
  - DRUG INEFFECTIVE [None]
